FAERS Safety Report 11294883 (Version 1)
Quarter: 2015Q3

REPORT INFORMATION
  Report Type: Spontaneous
  Country: US (occurrence: US)
  Receive Date: 20150723
  Receipt Date: 20150723
  Transmission Date: 20151125
  Serious: Yes (Other)
  Sender: FDA-Public Use
  Company Number: US-ROCHE-1609992

PATIENT
  Sex: Female

DRUGS (15)
  1. TROSPIUM CHLORIDE. [Concomitant]
     Active Substance: TROSPIUM CHLORIDE
     Dosage: TWICE A DAY
     Route: 065
  2. EXELON [Concomitant]
     Active Substance: RIVASTIGMINE TARTRATE
     Dosage: 13.3 UNIT NOT MENTIONED
     Route: 065
  3. LANSOPRAZOLE DELAYED RELEASE [Concomitant]
     Dosage: TWICE A DAY
     Route: 065
  4. ASACOL [Concomitant]
     Active Substance: MESALAMINE
     Indication: COLITIS ULCERATIVE
  5. SYNTHROID [Concomitant]
     Active Substance: LEVOTHYROXINE SODIUM
     Indication: HYPOTHYROIDISM
     Route: 065
  6. VANCOMYCIN [Suspect]
     Active Substance: VANCOMYCIN
     Indication: NEUROBORRELIOSIS
     Dosage: 200 OR 300 MG
     Route: 065
  7. CHOLESTYRAMINE. [Concomitant]
     Active Substance: CHOLESTYRAMINE
     Route: 065
  8. CROMOLYN SODIUM. [Concomitant]
     Active Substance: CROMOLYN SODIUM
  9. ROCEPHIN [Suspect]
     Active Substance: CEFTRIAXONE SODIUM
     Indication: NEUROBORRELIOSIS
     Dosage: TWICE A DAY
     Route: 065
  10. ROCEPHIN [Suspect]
     Active Substance: CEFTRIAXONE SODIUM
     Dosage: STARTED AT 1 GRAM AND PROGRESSED TO 2 GRAMS
     Route: 065
  11. CLONAZEPAM. [Concomitant]
     Active Substance: CLONAZEPAM
     Indication: SEIZURE
     Route: 065
  12. PROAIR HFA [Concomitant]
     Active Substance: ALBUTEROL SULFATE
     Dosage: AS NEED
     Route: 065
  13. EFFEXOR XR [Concomitant]
     Active Substance: VENLAFAXINE HYDROCHLORIDE
     Dosage: 75 MG AND AN ADDITIONAL 150 MG - TOTAL OF 225 MG
     Route: 065
  14. SINGULAIR [Concomitant]
     Active Substance: MONTELUKAST SODIUM
     Dosage: TWICE A DAY
     Route: 065
  15. URSODIOL. [Concomitant]
     Active Substance: URSODIOL
     Route: 065

REACTIONS (20)
  - Neuroborreliosis [Not Recovered/Not Resolved]
  - Lyme disease [Not Recovered/Not Resolved]
  - Abdominal pain upper [Unknown]
  - Osteoporosis [Not Recovered/Not Resolved]
  - Foot fracture [Not Recovered/Not Resolved]
  - Balance disorder [Not Recovered/Not Resolved]
  - Treatment noncompliance [Not Recovered/Not Resolved]
  - Amnesia [Not Recovered/Not Resolved]
  - Clostridium difficile infection [Recovered/Resolved]
  - Arthralgia [Not Recovered/Not Resolved]
  - Fracture [Unknown]
  - Hypoacusis [Not Recovered/Not Resolved]
  - Dizziness [Not Recovered/Not Resolved]
  - Toxicity to various agents [Unknown]
  - Bronchospasm [Unknown]
  - Hyperacusis [Not Recovered/Not Resolved]
  - Nephrolithiasis [Unknown]
  - Cholelithiasis [Not Recovered/Not Resolved]
  - Joint swelling [Not Recovered/Not Resolved]
  - Photophobia [Not Recovered/Not Resolved]
